FAERS Safety Report 8772892 (Version 1)
Quarter: 2012Q4

REPORT INFORMATION
  Report Type: 
  Country: BR (occurrence: BR)
  Receive Date: 20120907
  Receipt Date: 20120907
  Transmission Date: 20130627
  Serious: Yes (Other)
  Sender: FDA-Public Use
  Company Number: PHHY2012BR077887

PATIENT
  Sex: Male

DRUGS (2)
  1. RITALIN LA [Suspect]
     Indication: ATTENTION DEFICIT/HYPERACTIVITY DISORDER
     Dosage: 10 mg, UNK
     Route: 048
  2. KETOTIFEN FUMARATE [Concomitant]
     Indication: HYPERSENSITIVITY
     Dosage: 1 ml, BID
     Route: 048

REACTIONS (3)
  - Pharyngitis [Recovering/Resolving]
  - Wrong technique in drug usage process [Unknown]
  - Pyrexia [Recovering/Resolving]
